FAERS Safety Report 19622054 (Version 1)
Quarter: 2021Q3

REPORT INFORMATION
  Report Type: Spontaneous
  Country: NL (occurrence: NL)
  Receive Date: 20210728
  Receipt Date: 20210728
  Transmission Date: 20211014
  Serious: Yes (Hospitalization, Other)
  Sender: FDA-Public Use
  Company Number: NL-BAUSCH-BL-2021-025406

PATIENT
  Age: 30 Year
  Sex: Female

DRUGS (2)
  1. GENTAMICIN. [Suspect]
     Active Substance: GENTAMICIN
     Indication: METASTASES TO LUNG
     Route: 065
  2. GENTAMICIN. [Suspect]
     Active Substance: GENTAMICIN
     Indication: CHORIOCARCINOMA

REACTIONS (3)
  - Hypotension [Unknown]
  - Renal tubular necrosis [Unknown]
  - Nephropathy toxic [Unknown]
